APPROVED DRUG PRODUCT: TRIANEX
Active Ingredient: TRIAMCINOLONE ACETONIDE
Strength: 0.05%
Dosage Form/Route: OINTMENT;TOPICAL
Application: A089595 | Product #001
Applicant: CMP PHARMA INC
Approved: Mar 23, 1995 | RLD: No | RS: No | Type: DISCN